FAERS Safety Report 9420859 (Version 1)
Quarter: 2013Q3

REPORT INFORMATION
  Report Type: Spontaneous
  Country: US (occurrence: US)
  Receive Date: 20130725
  Receipt Date: 20130725
  Transmission Date: 20140515
  Serious: No
  Sender: FDA-Public Use
  Company Number: US-ABBOTT-13P-163-1072449-00

PATIENT
  Age: 73 Year
  Sex: Female
  Weight: 44.49 kg

DRUGS (3)
  1. SYNTHROID [Suspect]
     Indication: AUTOIMMUNE THYROIDITIS
     Dosage: HALF OF 75 MCG PLUS HALF OF 88 MCG TABLET
     Route: 048
  2. SYNTHROID [Suspect]
     Dosage: HALF OF 75 MCG PLUS HALF OF 88 MCG TABLET
     Route: 048
     Dates: start: 201212
  3. VITAMINS [Concomitant]
     Indication: VITAMIN SUPPLEMENTATION

REACTIONS (5)
  - Rash pruritic [Not Recovered/Not Resolved]
  - Exfoliative rash [Not Recovered/Not Resolved]
  - Dermatitis [Not Recovered/Not Resolved]
  - Rash [Not Recovered/Not Resolved]
  - Rash [Not Recovered/Not Resolved]
